FAERS Safety Report 21012587 (Version 4)
Quarter: 2022Q3

REPORT INFORMATION
  Report Type: Report from Study
  Country: US (occurrence: US)
  Receive Date: 20220627
  Receipt Date: 20220729
  Transmission Date: 20221027
  Serious: Yes (Life-Threatening, Hospitalization)
  Sender: FDA-Public Use
  Company Number: US-BRISTOL-MYERS SQUIBB COMPANY-2022-064277

PATIENT
  Age: 66 Year
  Sex: Male
  Weight: 107 kg

DRUGS (26)
  1. CARBOPLATIN [Suspect]
     Active Substance: CARBOPLATIN
     Indication: Non-small cell lung cancer
     Route: 065
     Dates: start: 20220404, end: 20220404
  2. CARBOPLATIN [Suspect]
     Active Substance: CARBOPLATIN
     Route: 065
     Dates: start: 20220520, end: 20220520
  3. CARBOPLATIN [Suspect]
     Active Substance: CARBOPLATIN
     Route: 065
     Dates: start: 20220425, end: 20220425
  4. PEMETREXED DISODIUM [Suspect]
     Active Substance: PEMETREXED DISODIUM
     Indication: Non-small cell lung cancer
     Dosage: MOST RECENT DOSE ON 20-MAY-2022, PRIOR TO THE EVENT ONSET
     Route: 065
     Dates: start: 20220404, end: 20220520
  5. LISINOPRIL [Concomitant]
     Active Substance: LISINOPRIL
     Indication: Product used for unknown indication
     Dosage: 1 TABLET DAILY; PER DAY?ONGOING
     Route: 048
     Dates: start: 20110505
  6. ZOLPIDEM [Concomitant]
     Active Substance: ZOLPIDEM TARTRATE
     Indication: Product used for unknown indication
     Dosage: AD LIBITUM?1 TABLET AT BEDTIME AS NEEDED FOR SLEEP FOR UP TO 90 DAYS?ONGOING
     Route: 048
     Dates: start: 20220215
  7. ALLOPURINOL [Concomitant]
     Active Substance: ALLOPURINOL
     Indication: Prophylaxis
     Dosage: 1 TABLET DAILY; PER DAY?ONGOING
     Route: 048
     Dates: start: 20170823
  8. HYDROXYZINE PAMOATE [Concomitant]
     Active Substance: HYDROXYZINE PAMOATE
     Indication: Anxiety
     Dosage: BD; TWICE PER DAY?2 TIMES DAILY AS NEEDED?ONGOING
     Route: 048
     Dates: start: 20210120
  9. CHOLECALCIFEROL [Concomitant]
     Active Substance: CHOLECALCIFEROL
     Indication: Product used for unknown indication
     Dosage: 2000 UNITS DAILY; PER DAY?ONGOING
     Route: 048
     Dates: start: 20200204
  10. THERAGRAN [ASCORBIC ACID;CALCIUM PANTOTHENATE;CYANOCOBALAMIN;ERGOCALCI [Concomitant]
     Indication: Product used for unknown indication
     Dosage: 1DF=1 TABLET?1 TABLET DAILY; PER DAY?ONGOING
     Route: 048
     Dates: start: 20170410
  11. LATANOPROST [Concomitant]
     Active Substance: LATANOPROST
     Indication: Product used for unknown indication
     Dosage: LATANOPROST 0.005%?1DF= 1DROP?PLACE 1 DROP INTO BOTH EYES NIGHTLY DAILY; PER DAY?ONGOING
     Route: 031
     Dates: start: 1987
  12. DIETARY SUPPLEMENT\HERBALS\MILK THISTLE [Concomitant]
     Active Substance: DIETARY SUPPLEMENT\HERBALS\MILK THISTLE
     Indication: Product used for unknown indication
     Dosage: 1 CAPSULE DAILY; PER DAY?ONGOING
     Route: 048
     Dates: start: 20170410
  13. FOLIC ACID [Concomitant]
     Active Substance: FOLIC ACID
     Indication: Prophylaxis
     Dosage: 1 TABLET DAILY; PER DAY?ONGOING
     Route: 048
     Dates: start: 20220404
  14. LEVOMEFOLIC ACID [Concomitant]
     Active Substance: LEVOMEFOLIC ACID
     Indication: Prophylaxis
     Dosage: L-METHYLFOLATE B6 B12 3-352?1 DF=1 UNIT NOS?BD; TWICE PER DAY?ONGOING
     Route: 048
     Dates: start: 20210420
  15. OMEPRAZOLE [Concomitant]
     Active Substance: OMEPRAZOLE
     Indication: Product used for unknown indication
     Dosage: CAPSULE DELAYED RELEASE?1 CAPSULE DAILY; PER DAY?ONGOING
     Route: 048
     Dates: start: 2002
  16. HYDROCHLOROTHIAZIDE [Concomitant]
     Active Substance: HYDROCHLOROTHIAZIDE
     Indication: Product used for unknown indication
     Dosage: 1 TABLET DAILY; PER DAY?ONGOING
     Route: 048
     Dates: start: 20130730
  17. SIMVASTATIN [Concomitant]
     Active Substance: SIMVASTATIN
     Indication: Product used for unknown indication
     Dosage: 1 TABLET DAILY; PER DAY?ONGOING
     Route: 048
     Dates: start: 20110505
  18. POTASSIUM [Concomitant]
     Active Substance: POTASSIUM
     Indication: Prophylaxis
     Dosage: 1DF (TABLET)= 99 MG?1 TABLET DAILY; PER DAY?ONGOING
     Route: 048
     Dates: start: 20220224
  19. CELEBREX [Concomitant]
     Active Substance: CELECOXIB
     Indication: Product used for unknown indication
     Dosage: DAILY; PER DAY?ONGOING
     Route: 048
     Dates: start: 20210910
  20. CINNAMON [CINNAMOMUM VERUM] [Concomitant]
     Indication: Product used for unknown indication
     Dosage: DAILY; PER DAY?ONGOING
     Route: 048
     Dates: start: 20220224
  21. TRAMADOL [Concomitant]
     Active Substance: TRAMADOL
     Indication: Product used for unknown indication
     Dosage: AS NEEDED?ONGOING
     Route: 048
     Dates: start: 20210812
  22. ROBAXIN [Concomitant]
     Active Substance: METHOCARBAMOL
     Indication: Muscle spasms
     Dosage: TAKES 750 MG ORAL BID AS NEEDED (PRN). TAKES BID SCHEDULED. ?TAKES AN ADDITIONAL 1 TABLET BID PRN.
     Route: 048
  23. PROAIR HFA [Concomitant]
     Active Substance: ALBUTEROL SULFATE
     Indication: Product used for unknown indication
     Dosage: 108 (90 BASE) MCG PER PUFF INHALER.?2 PUFFS EVERY 4 HOURS AS NEEDED.
     Route: 065
     Dates: start: 20220601
  24. NEURONTIN [Concomitant]
     Active Substance: GABAPENTIN
     Indication: Product used for unknown indication
     Dosage: 1 CAPSULE, 3 TIMES DAILY FOR 90 DAYS (TILL 07-JUL-2022)
     Route: 048
     Dates: start: 20220408
  25. COMPAZINE [Concomitant]
     Active Substance: PROCHLORPERAZINE MALEATE
     Indication: Nausea
     Dosage: 1 TABLET, EVERY 4 TO 6 HOURS AS NEEDED.
     Route: 048
     Dates: start: 20220404
  26. COMPAZINE [Concomitant]
     Active Substance: PROCHLORPERAZINE MALEATE
     Indication: Vomiting

REACTIONS (2)
  - Anaemia [Recovering/Resolving]
  - Dyspnoea [Recovering/Resolving]

NARRATIVE: CASE EVENT DATE: 20220618
